FAERS Safety Report 21152330 (Version 1)
Quarter: 2022Q3

REPORT INFORMATION
  Report Type: Spontaneous
  Country: US (occurrence: US)
  Receive Date: 20220730
  Receipt Date: 20220730
  Transmission Date: 20221026
  Serious: No
  Sender: FDA-Public Use
  Company Number: US-SANOFI-01199088

PATIENT
  Sex: Female

DRUGS (1)
  1. DUPIXENT [Suspect]
     Active Substance: DUPILUMAB
     Indication: Dermatitis atopic
     Dosage: UNK
     Dates: start: 2018

REACTIONS (5)
  - Lymphadenopathy [Not Recovered/Not Resolved]
  - Respiratory tract infection [Unknown]
  - Skin infection [Unknown]
  - Eosinophilia [Unknown]
  - Rash [Unknown]
